FAERS Safety Report 20901842 (Version 1)
Quarter: 2022Q2

REPORT INFORMATION
  Report Type: Spontaneous
  Country: US (occurrence: None)
  Receive Date: 20220531
  Receipt Date: 20220531
  Transmission Date: 20220721
  Serious: Yes (Disabling)
  Sender: FDA-Public Use
  Company Number: None

PATIENT
  Sex: Female
  Weight: 58.97 kg

DRUGS (2)
  1. SKYLA [Suspect]
     Active Substance: LEVONORGESTREL
     Dates: start: 20200917, end: 20220315
  2. Women^s multivitamin [Concomitant]

REACTIONS (4)
  - Alopecia [None]
  - Eczema [None]
  - Food allergy [None]
  - Hypersensitivity [None]
